FAERS Safety Report 4807781-3 (Version None)
Quarter: 2005Q4

REPORT INFORMATION
  Report Type: 
  Country: None (occurrence: None)
  Receive Date: 20051021
  Receipt Date: 20010810
  Transmission Date: 20060501
  Serious: No
  Sender: FDA-Public Use
  Company Number: US_010871795

PATIENT
  Age: 19 Year
  Sex: Female

DRUGS (2)
  1. ZYPREXA [Suspect]
     Indication: EATING DISORDER
  2. PROZAC [Suspect]
     Indication: EATING DISORDER

REACTIONS (2)
  - MACROCYTOSIS [None]
  - OEDEMA PERIPHERAL [None]
